FAERS Safety Report 22382728 (Version 1)
Quarter: 2023Q2

REPORT INFORMATION
  Report Type: Spontaneous
  Country: US (occurrence: None)
  Receive Date: 20230530
  Receipt Date: 20230530
  Transmission Date: 20230722
  Serious: No
  Sender: FDA-Public Use
  Company Number: US-MICRO LABS LIMITED-ML2023-02769

PATIENT
  Sex: Male

DRUGS (1)
  1. DORZOLAMIDE\TIMOLOL [Suspect]
     Active Substance: DORZOLAMIDE\TIMOLOL
     Indication: Product used for unknown indication
     Dosage: ONE DROP IN EACH EYE; STRENGTH 2% / 0.5%
     Route: 047

REACTIONS (5)
  - Malaise [Unknown]
  - Constipation [Unknown]
  - Weight decreased [Unknown]
  - Dysgeusia [Unknown]
  - Product storage error [Unknown]
